FAERS Safety Report 7370746-4 (Version None)
Quarter: 2011Q1

REPORT INFORMATION
  Report Type: 
  Country: None (occurrence: None)
  Receive Date: 20110323
  Receipt Date: 20110316
  Transmission Date: 20110831
  Serious: Yes (Death, Hospitalization)
  Sender: FDA-Public Use
  Company Number: DE-BRISTOL-MYERS SQUIBB COMPANY-15618895

PATIENT
  Age: 77 Year
  Sex: Male
  Weight: 78 kg

DRUGS (7)
  1. RAMIPRIL PLUS [Concomitant]
     Indication: HYPERTENSION
     Dates: start: 20000115
  2. DIGIMERCK [Concomitant]
     Indication: CARDIAC DISORDER
     Dates: start: 20000115
  3. ERBITUX [Suspect]
     Indication: COLORECTAL CANCER METASTATIC
     Dosage: 250MG/M2 ON 03JAN11-21FEB11(49 DAYS)
     Route: 042
     Dates: start: 20101228, end: 20110221
  4. 5-FLUOROURACIL [Concomitant]
     Indication: COLORECTAL CANCER METASTATIC
     Dosage: CONTINUED INF ON DAY 1 AND 2,400MG/M2 OVER 22 TO 24 HRS CONTINUEOS INF.
     Route: 040
  5. IRINOTECAN HYDROCHLORIDE [Concomitant]
     Indication: COLORECTAL CANCER METASTATIC
     Dates: start: 20101227
  6. CALCIUM FOLINATE [Concomitant]
     Indication: COLORECTAL CANCER METASTATIC
     Dates: start: 20101227
  7. PRAVASTATIN SODIUM [Concomitant]
     Indication: HYPERTENSION
     Dates: start: 20000115

REACTIONS (1)
  - ACUTE MYOCARDIAL INFARCTION [None]
